FAERS Safety Report 7456978-5 (Version None)
Quarter: 2011Q2

REPORT INFORMATION
  Report Type: 
  Country: None (occurrence: None)
  Receive Date: 20110504
  Receipt Date: 20110103
  Transmission Date: 20111010
  Serious: Yes (Hospitalization)
  Sender: FDA-Public Use
  Company Number: US-BAYER-201032520NA

PATIENT
  Age: 27 Year
  Sex: Female
  Weight: 105 kg

DRUGS (8)
  1. YAZ [Suspect]
     Indication: PRODUCT USED FOR UNKNOWN INDICATION
     Dosage: UNK UNK, QD
     Route: 048
     Dates: start: 20080601, end: 20081001
  2. PROTONIX [Concomitant]
     Indication: PRODUCT USED FOR UNKNOWN INDICATION
     Route: 065
  3. HYDROCODONE BITARTRATE [Concomitant]
     Indication: PRODUCT USED FOR UNKNOWN INDICATION
     Route: 065
  4. VICODIN [Concomitant]
     Dosage: UNK
     Dates: start: 20080917
  5. LOMOTIL [DIPHENOXYLATE HYDROCHLORIDE] [Concomitant]
  6. ANTIBIOTICS [Concomitant]
     Indication: PRODUCT USED FOR UNKNOWN INDICATION
     Route: 065
  7. LISINOPRIL [Concomitant]
     Indication: PRODUCT USED FOR UNKNOWN INDICATION
     Route: 065
  8. IBUPROFEN [Concomitant]
     Indication: PRODUCT USED FOR UNKNOWN INDICATION
     Route: 065

REACTIONS (8)
  - INJURY [None]
  - EMOTIONAL DISTRESS [None]
  - NERVOUSNESS [None]
  - ABDOMINAL PAIN UPPER [None]
  - DEPRESSION [None]
  - FEAR OF DEATH [None]
  - CHOLELITHIASIS [None]
  - CHOLECYSTITIS CHRONIC [None]
